FAERS Safety Report 8113540-9 (Version None)
Quarter: 2012Q1

REPORT INFORMATION
  Report Type: 
  Country: None (occurrence: None)
  Receive Date: 20120203
  Receipt Date: 20120131
  Transmission Date: 20120608
  Serious: Yes (Hospitalization, Other)
  Sender: FDA-Public Use
  Company Number: PT-ABBOTT-11P-130-0844252-00

PATIENT
  Age: 46 Year
  Sex: Male

DRUGS (15)
  1. GOLIMUMAB [Suspect]
     Indication: SPONDYLOARTHROPATHY
  2. CYCLOSPORINE [Concomitant]
     Indication: PRODUCT USED FOR UNKNOWN INDICATION
     Dosage: FOR THREE YEARS
  3. ENBREL [Suspect]
     Indication: SERONEGATIVE ARTHRITIS
     Dates: start: 20060101
  4. ENBREL [Suspect]
  5. GOLIMUMAB [Suspect]
  6. HUMIRA [Suspect]
  7. UNSPECIFIED ANTI-INFLAMMATORY DRUG [Concomitant]
     Indication: PRODUCT USED FOR UNKNOWN INDICATION
  8. HUMIRA [Suspect]
     Indication: SERONEGATIVE ARTHRITIS
     Dates: start: 20101201, end: 20110301
  9. ALLOPURINOL [Concomitant]
     Indication: PRODUCT USED FOR UNKNOWN INDICATION
  10. VOLTAREN [Concomitant]
     Indication: PRODUCT USED FOR UNKNOWN INDICATION
  11. ENBREL [Suspect]
     Indication: PSORIASIS
  12. HUMIRA [Suspect]
     Indication: SPONDYLOARTHROPATHY
  13. GOLIMUMAB [Suspect]
     Indication: LEUKOCYTE ANTIGEN B-27 POSITIVE
  14. ENBREL [Suspect]
     Indication: LEUKOCYTE ANTIGEN B-27 POSITIVE
  15. GOLIMUMAB [Suspect]
     Indication: SERONEGATIVE ARTHRITIS
     Dosage: RECEIVED ONLY TWO DOSES-50MG MONTHLY
     Route: 065
     Dates: start: 20110501, end: 20110713

REACTIONS (5)
  - DEMYELINATION [None]
  - ASTHENIA [None]
  - MONOPARESIS [None]
  - SPONDYLOARTHROPATHY [None]
  - DRUG INEFFECTIVE [None]
